FAERS Safety Report 9438888 (Version 2)
Quarter: 2014Q2

REPORT INFORMATION
  Report Type: Spontaneous
  Country: US (occurrence: US)
  Receive Date: 20130802
  Receipt Date: 20140611
  Transmission Date: 20141212
  Serious: Yes (Other)
  Sender: FDA-Public Use
  Company Number: US-ROCHE-1020276

PATIENT
  Sex: Male
  Weight: 68.1 kg

DRUGS (2)
  1. ACCUTANE [Suspect]
     Indication: ACNE CYSTIC
     Route: 048
     Dates: start: 199612, end: 199707
  2. ACCUTANE [Suspect]
     Dosage: 20-40MG
     Route: 048
     Dates: start: 200001, end: 20000630

REACTIONS (7)
  - Colitis ulcerative [Unknown]
  - Depression [Unknown]
  - Intestinal haemorrhage [Unknown]
  - Arthritis [Unknown]
  - Hepatic enzyme increased [Unknown]
  - Anaemia [Unknown]
  - Dyspnoea [Unknown]
